FAERS Safety Report 9486837 (Version 5)
Quarter: 2013Q4

REPORT INFORMATION
  Report Type: Spontaneous
  Country: RO (occurrence: RO)
  Receive Date: 20130829
  Receipt Date: 20131224
  Transmission Date: 20140711
  Serious: Yes (Death, Life-Threatening, Hospitalization, Other)
  Sender: FDA-Public Use
  Company Number: RO-ELI_LILLY_AND_COMPANY-RO201308008480

PATIENT
  Age: 32 Year
  Sex: Male
  Weight: 86 kg

DRUGS (2)
  1. ZYPADHERA [Suspect]
     Indication: SCHIZOPHRENIA
     Dosage: 210 MG, (2/M)
     Dates: start: 20120308
  2. ZYPADHERA [Suspect]
     Indication: PSYCHOTIC DISORDER
     Dosage: 405 MG, MONTHLY (1/M)
     Dates: start: 20120524, end: 20130801

REACTIONS (23)
  - Aggression [Not Recovered/Not Resolved]
  - Pulmonary oedema [Not Recovered/Not Resolved]
  - Pulmonary embolism [Not Recovered/Not Resolved]
  - Chills [Not Recovered/Not Resolved]
  - Pyrexia [Not Recovered/Not Resolved]
  - Aspartate aminotransferase increased [Not Recovered/Not Resolved]
  - Catatonia [Not Recovered/Not Resolved]
  - Cardiac arrest [Fatal]
  - Respiratory arrest [Fatal]
  - Convulsion [Fatal]
  - Hyperthermia malignant [Not Recovered/Not Resolved]
  - Agitation [Not Recovered/Not Resolved]
  - Haematemesis [Not Recovered/Not Resolved]
  - Brain oedema [Not Recovered/Not Resolved]
  - Pulmonary fibrosis [Not Recovered/Not Resolved]
  - Cardiomegaly [Not Recovered/Not Resolved]
  - Myocarditis [Not Recovered/Not Resolved]
  - Splenomegaly [Not Recovered/Not Resolved]
  - Hepatomegaly [Not Recovered/Not Resolved]
  - Myocardial fibrosis [Not Recovered/Not Resolved]
  - Myocardial infarction [Not Recovered/Not Resolved]
  - Poisoning [Not Recovered/Not Resolved]
  - Pneumonia [Not Recovered/Not Resolved]
